FAERS Safety Report 4416792-1 (Version None)
Quarter: 2004Q3

REPORT INFORMATION
  Report Type: 
  Country: None (occurrence: None)
  Receive Date: 20040802
  Receipt Date: 20040721
  Transmission Date: 20050211
  Serious: Yes (Death)
  Sender: FDA-Public Use
  Company Number: MK200407-0174-1

PATIENT
  Age: 44 Year
  Sex: Female

DRUGS (5)
  1. MORPHINE SULFATE [Suspect]
     Indication: OVERDOSE
     Dosage: ONE TIME
     Dates: start: 20040101, end: 20040101
  2. ETHANOL [Suspect]
  3. OXYCODONE HCL [Suspect]
  4. CITALOPRAM [Concomitant]
  5. DIAZEPAM [Concomitant]

REACTIONS (3)
  - ACCIDENT [None]
  - ALCOHOL USE [None]
  - MULTIPLE DRUG OVERDOSE [None]
